FAERS Safety Report 10916122 (Version 3)
Quarter: 2015Q2

REPORT INFORMATION
  Report Type: Spontaneous
  Country: DE (occurrence: DE)
  Receive Date: 20150316
  Receipt Date: 20150602
  Transmission Date: 20150821
  Serious: Yes (Hospitalization)
  Sender: FDA-Public Use
  Company Number: DE-AMGEN-DEUSP2015024094

PATIENT
  Age: 59 Year
  Sex: Male
  Weight: 130 kg

DRUGS (12)
  1. ENBREL [Suspect]
     Active Substance: ETANERCEPT
     Indication: PSORIATIC ARTHROPATHY
     Dosage: 50 MG, WEEKLY
     Route: 065
     Dates: start: 201203
  2. SIMVASTATIN. [Concomitant]
     Active Substance: SIMVASTATIN
     Dosage: 40 MG, UNK
     Dates: start: 2015
  3. MOXONIDINE [Concomitant]
     Active Substance: MOXONIDINE
     Dosage: 0.3 MG, UNK
     Dates: start: 2010
  4. LANTUS [Concomitant]
     Active Substance: INSULIN GLARGINE
     Dosage: 100 E/ML
  5. HUMINSULIN NORMAL [Concomitant]
     Dosage: UNK
  6. ENBREL [Suspect]
     Active Substance: ETANERCEPT
     Dosage: UNK
     Route: 065
     Dates: start: 20150330
  7. METFORMIN [Concomitant]
     Active Substance: METFORMIN HYDROCHLORIDE
     Dosage: 1000 MG, UNK
     Dates: start: 2015
  8. METOHEXAL                          /00376903/ [Concomitant]
     Active Substance: METOPROLOL SUCCINATE
     Dosage: 47.5 MG, UNK
     Dates: start: 2010
  9. PANTOPRAZOLE SODIUM. [Concomitant]
     Active Substance: PANTOPRAZOLE SODIUM
     Dosage: 20 MG, UNK
     Dates: start: 2010
  10. ALLOBETA [Concomitant]
     Dosage: 300 MG, UNK
     Dates: start: 2010
  11. EXFORGE HCT [Concomitant]
     Active Substance: AMLODIPINE BESYLATE\HYDROCHLOROTHIAZIDE\VALSARTAN
     Dosage: 10/160/12.5
     Dates: start: 2010
  12. VALSARTAN DURA [Concomitant]
     Dosage: 160 MG, UNK
     Dates: start: 2010

REACTIONS (10)
  - Hypertensive crisis [Unknown]
  - Bronchitis [Unknown]
  - Ischaemic stroke [Recovered/Resolved]
  - Arteriosclerosis [Unknown]
  - Embolic stroke [Unknown]
  - Hypertensive heart disease [Unknown]
  - Hyperlipidaemia [Unknown]
  - Blood glucose increased [Not Recovered/Not Resolved]
  - Bronchitis [Recovered/Resolved]
  - Hyperuricaemia [Unknown]

NARRATIVE: CASE EVENT DATE: 2014
